FAERS Safety Report 13342464 (Version 1)
Quarter: 2017Q1

REPORT INFORMATION
  Report Type: Report from Study
  Country: BR (occurrence: BR)
  Receive Date: 20170316
  Receipt Date: 20170316
  Transmission Date: 20170428
  Serious: Yes (Other)
  Sender: FDA-Public Use
  Company Number: BR-JNJFOC-20161219463

PATIENT
  Age: 60 Year
  Sex: Female
  Weight: 88 kg

DRUGS (3)
  1. SIMPONI [Suspect]
     Active Substance: GOLIMUMAB
     Indication: RHEUMATOID ARTHRITIS
     Route: 058
     Dates: start: 20161122
  2. ANAFRANIL [Concomitant]
     Active Substance: CLOMIPRAMINE HYDROCHLORIDE
     Route: 065
  3. ROHYDORM [Concomitant]
     Route: 065

REACTIONS (4)
  - Herpes zoster [Recovered/Resolved]
  - Fall [Unknown]
  - Myalgia [Unknown]
  - Chest injury [Unknown]

NARRATIVE: CASE EVENT DATE: 20161211
